FAERS Safety Report 4892055-5 (Version None)
Quarter: 2006Q1

REPORT INFORMATION
  Report Type: 
  Country: None (occurrence: None)
  Receive Date: 20060123
  Receipt Date: 20060113
  Transmission Date: 20060701
  Serious: Yes (Death, Hospitalization)
  Sender: FDA-Public Use
  Company Number: 2006007734

PATIENT
  Age: 66 Year
  Sex: Female

DRUGS (4)
  1. RANITIDINE HYDROCHLORIDE [Suspect]
     Indication: INFLUENZA LIKE ILLNESS
     Dosage: ORAL
     Route: 048
  2. CETIRIZINE (CETIRIZINE) [Suspect]
     Indication: INFLUENZA LIKE ILLNESS
  3. PROPRANOLOL [Suspect]
     Indication: INFLUENZA LIKE ILLNESS
  4. MEXAZOLAM (MEXAZOLAM) [Suspect]
     Indication: INFLUENZA LIKE ILLNESS

REACTIONS (9)
  - HEPATIC ENCEPHALOPATHY [None]
  - HEPATIC FAILURE [None]
  - HEPATIC NECROSIS [None]
  - HEPATIC SIDEROSIS [None]
  - HEPATIC STEATOSIS [None]
  - HEPATITIS ACUTE [None]
  - HYPOGLYCAEMIA [None]
  - HYPOVOLAEMIC SHOCK [None]
  - UPPER GASTROINTESTINAL HAEMORRHAGE [None]
